FAERS Safety Report 8735645 (Version 2)
Quarter: 2012Q4

REPORT INFORMATION
  Report Type: 
  Country: DE (occurrence: DE)
  Receive Date: 20120822
  Receipt Date: 20121008
  Transmission Date: 20130627
  Serious: Yes (Other)
  Sender: FDA-Public Use
  Company Number: DE-JNJFOC-20120809141

PATIENT
  Age: 66 Year
  Sex: Male
  Weight: 70 kg

DRUGS (12)
  1. XARELTO [Suspect]
     Indication: CEREBROVASCULAR ACCIDENT PROPHYLAXIS
     Route: 048
     Dates: start: 20120508, end: 20120525
  2. XARELTO [Suspect]
     Indication: DECUBITUS ULCER
     Route: 048
     Dates: start: 20120508, end: 20120525
  3. XARELTO [Suspect]
     Indication: IMMOBILISATION PROLONGED
     Route: 048
     Dates: start: 20120508, end: 20120525
  4. XARELTO [Suspect]
     Indication: ATRIAL FIBRILLATION
     Route: 048
     Dates: start: 20120508, end: 20120525
  5. BACLOFEN [Concomitant]
  6. FENTANYL [Concomitant]
     Route: 062
  7. ESOMEPRAZOLE [Concomitant]
  8. ACIMETHIN [Concomitant]
  9. METOPROLOL [Concomitant]
  10. ACC [Concomitant]
  11. CLEXANE [Concomitant]
     Indication: ANTICOAGULANT THERAPY
     Route: 058
     Dates: start: 201201, end: 20120507
  12. CLEXANE [Concomitant]
     Indication: ANTICOAGULANT THERAPY
     Route: 058

REACTIONS (2)
  - Thrombocytopenia [Recovered/Resolved]
  - Anaemia [Recovered/Resolved]
